FAERS Safety Report 16130297 (Version 1)
Quarter: 2019Q1

REPORT INFORMATION
  Report Type: Spontaneous
  Country: ES (occurrence: ES)
  Receive Date: 20190328
  Receipt Date: 20190328
  Transmission Date: 20190418
  Serious: Yes (Other)
  Sender: FDA-Public Use
  Company Number: ES-TEVA-2019-ES-1028982

PATIENT
  Age: 61 Year
  Sex: Male
  Weight: 120 kg

DRUGS (3)
  1. AMOXICILINA (108A) [Suspect]
     Active Substance: AMOXICILLIN
     Indication: BRONCHITIS
     Route: 048
     Dates: start: 20190213, end: 20190227
  2. ALGIDOL 650 MG/ 10 MG/ 500 MG GRANULADO PARA SOLUCION ORAL , 12 SOBRES [Concomitant]
     Indication: BRONCHITIS
     Route: 048
     Dates: start: 20190214, end: 20190220
  3. METAMIZOL 575 MG 20 C?PSULAS [Concomitant]
     Indication: BRONCHITIS
     Route: 048
     Dates: start: 20190213, end: 20190227

REACTIONS (1)
  - Abdominal wall haematoma [Recovering/Resolving]

NARRATIVE: CASE EVENT DATE: 20190217
